FAERS Safety Report 9964371 (Version 2)
Quarter: 2014Q2

REPORT INFORMATION
  Report Type: Report from Study
  Country: JP (occurrence: JP)
  Receive Date: 20140305
  Receipt Date: 20140414
  Transmission Date: 20141212
  Serious: Yes (Other)
  Sender: FDA-Public Use
  Company Number: JP-GLAXOSMITHKLINE-B0973066A

PATIENT
  Age: 27 Year
  Sex: Female
  Weight: 50 kg

DRUGS (6)
  1. VOTRIENT 200MG [Suspect]
     Indication: ALVEOLAR SOFT PART SARCOMA
     Dosage: 800MG PER DAY
     Route: 048
     Dates: start: 20130121, end: 20130217
  2. VOTRIENT 200MG [Suspect]
     Indication: ALVEOLAR SOFT PART SARCOMA
     Dosage: 800MG PER DAY
     Route: 048
     Dates: start: 20130225, end: 20130310
  3. VOTRIENT 200MG [Suspect]
     Indication: ALVEOLAR SOFT PART SARCOMA
     Dosage: 600MG PER DAY
     Route: 048
     Dates: start: 20130311, end: 20130324
  4. VOTRIENT 200MG [Suspect]
     Indication: ALVEOLAR SOFT PART SARCOMA
     Dosage: 400MG PER DAY
     Route: 048
     Dates: start: 20130513, end: 20130526
  5. VOTRIENT 200MG [Suspect]
     Indication: ALVEOLAR SOFT PART SARCOMA
     Dosage: 400MG PER DAY
     Route: 048
     Dates: start: 20130610, end: 20130623
  6. VOTRIENT 200MG [Suspect]
     Indication: ALVEOLAR SOFT PART SARCOMA
     Dosage: 200MG PER DAY
     Route: 048
     Dates: start: 20130904, end: 20130910

REACTIONS (18)
  - Erythema multiforme [Recovered/Resolved]
  - Nausea [Recovered/Resolved]
  - Headache [Recovered/Resolved]
  - Blood pressure increased [Recovered/Resolved]
  - Metrorrhagia [Recovered/Resolved]
  - Epistaxis [Recovered/Resolved]
  - Palmar-plantar erythrodysaesthesia syndrome [Recovered/Resolved]
  - Rash [Recovered/Resolved]
  - Blood thyroid stimulating hormone increased [Recovered/Resolved]
  - Alanine aminotransferase increased [Recovered/Resolved]
  - Skin depigmentation [Recovered/Resolved]
  - Visual impairment [Recovered/Resolved]
  - Erythema [Recovered/Resolved]
  - Aspartate aminotransferase increased [Recovered/Resolved]
  - Alanine aminotransferase increased [Recovered/Resolved]
  - Pollakiuria [Recovered/Resolved]
  - Aspartate aminotransferase increased [Recovered/Resolved]
  - Urinary tract infection [Recovered/Resolved]
